FAERS Safety Report 16762301 (Version 1)
Quarter: 2019Q3

REPORT INFORMATION
  Report Type: Report from Study
  Country: None (occurrence: CO)
  Receive Date: 20190831
  Receipt Date: 20190831
  Transmission Date: 20191005
  Serious: Yes (Other)
  Sender: FDA-Public Use
  Company Number: CO-ABBVIE-19K-036-2908918-00

PATIENT
  Age: 31 Year
  Sex: Female
  Weight: 53 kg

DRUGS (1)
  1. HUMIRA [Suspect]
     Active Substance: ADALIMUMAB
     Indication: CROHN^S DISEASE
     Route: 058
     Dates: start: 20190626

REACTIONS (6)
  - Vomiting [Recovering/Resolving]
  - Pneumonitis [Recovering/Resolving]
  - Myalgia [Recovering/Resolving]
  - Pyrexia [Recovering/Resolving]
  - Oral herpes [Recovering/Resolving]
  - Diarrhoea [Recovering/Resolving]

NARRATIVE: CASE EVENT DATE: 20190812
